FAERS Safety Report 5988291-7 (Version None)
Quarter: 2008Q4

REPORT INFORMATION
  Report Type: 
  Country: None (occurrence: None)
  Receive Date: 20081210
  Receipt Date: 20081201
  Transmission Date: 20090506
  Serious: Yes (Hospitalization, Disabling, Other)
  Sender: FDA-Public Use
  Company Number: US-MERCK-0802USA03893

PATIENT
  Age: 71 Year
  Sex: Female
  Weight: 62 kg

DRUGS (5)
  1. FOSAMAX [Suspect]
     Indication: OSTEOPOROSIS
     Route: 048
     Dates: start: 20040201, end: 20070201
  2. [THERAPY UNSPECIFIED] [Concomitant]
     Indication: HYPERTENSION
     Route: 065
     Dates: start: 20020101
  3. [THERAPY UNSPECIFIED] [Concomitant]
     Indication: BLOOD CHOLESTEROL INCREASED
     Route: 065
     Dates: start: 19900101
  4. [THERAPY UNSPECIFIED] [Concomitant]
     Indication: DIABETES MELLITUS
     Route: 065
     Dates: start: 19900101
  5. FOSAMAX [Suspect]
     Route: 048
     Dates: start: 20030101, end: 20040201

REACTIONS (24)
  - ADVERSE DRUG REACTION [None]
  - CANDIDIASIS [None]
  - CARDIAC MURMUR [None]
  - CATARACT [None]
  - DENTAL FISTULA [None]
  - DIABETIC EYE DISEASE [None]
  - DIARRHOEA [None]
  - DRUG HYPERSENSITIVITY [None]
  - DYSLIPIDAEMIA [None]
  - FIBROCYSTIC BREAST DISEASE [None]
  - GINGIVAL BLEEDING [None]
  - HERPES SIMPLEX [None]
  - HYPERCHOLESTEROLAEMIA [None]
  - HYPERKERATOSIS [None]
  - IMPAIRED HEALING [None]
  - NEPHROLITHIASIS [None]
  - ORAL INFECTION [None]
  - OSTEONECROSIS [None]
  - SEBORRHOEIC KERATOSIS [None]
  - SINUS DISORDER [None]
  - SINUSITIS [None]
  - TOOTH FRACTURE [None]
  - VITREOUS DEGENERATION [None]
  - WHITE BLOOD CELL COUNT INCREASED [None]
